FAERS Safety Report 4911104-9 (Version None)
Quarter: 2006Q1

REPORT INFORMATION
  Report Type: 
  Country: None (occurrence: None)
  Receive Date: 20060209
  Receipt Date: 20060130
  Transmission Date: 20060701
  Serious: Yes (Hospitalization)
  Sender: FDA-Public Use
  Company Number: 2006010085

PATIENT
  Age: 82 Year
  Sex: Female

DRUGS (8)
  1. LYRICA [Suspect]
     Indication: NEURALGIA
     Dosage: 150 MG (25 MG}, ORAL
     Route: 048
     Dates: start: 20051101, end: 20060124
  2. EMCONCOR (BISOPROLOL) [Concomitant]
  3. ACETYLSALICYLIC ACID SRT [Concomitant]
  4. SIMVASTATIN [Concomitant]
  5. DURAGESIC [Concomitant]
  6. BESITRAN [Concomitant]
  7. ENALAPRIL MALEATE [Concomitant]
  8. INSULIN [Concomitant]

REACTIONS (3)
  - BLOOD GLUCOSE INCREASED [None]
  - FALL [None]
  - HYPOGLYCAEMIA [None]
